FAERS Safety Report 17798651 (Version 1)
Quarter: 2020Q2

REPORT INFORMATION
  Report Type: Spontaneous
  Country: GB (occurrence: GB)
  Receive Date: 20200518
  Receipt Date: 20200518
  Transmission Date: 20200714
  Serious: Yes (Other)
  Sender: FDA-Public Use
  Company Number: NVSC2020GB134548

PATIENT
  Age: 79 Year
  Sex: Male

DRUGS (2)
  1. ACETYLSALICYLIC ACID [Suspect]
     Active Substance: ASPIRIN
     Indication: PRODUCT USED FOR UNKNOWN INDICATION
     Dosage: 75 MG, QD
     Route: 065
  2. DIAMOX SEQUELS [Interacting]
     Active Substance: ACETAZOLAMIDE
     Indication: GLAUCOMA
     Dosage: UNK
     Route: 065

REACTIONS (3)
  - Fatigue [Unknown]
  - Dyspnoea [Unknown]
  - Labelled drug-drug interaction medication error [Unknown]
